FAERS Safety Report 9887805 (Version 3)
Quarter: 2016Q1

REPORT INFORMATION
  Report Type: Report from Study
  Country: FR (occurrence: FR)
  Receive Date: 20140211
  Receipt Date: 20160225
  Transmission Date: 20160526
  Serious: Yes (Other)
  Sender: FDA-Public Use
  Company Number: FR-SANOFI-AVENTIS-2012SA010276

PATIENT
  Age: 29 Year
  Sex: Male
  Weight: 69 kg

DRUGS (9)
  1. FLECTOR [Concomitant]
     Active Substance: DICLOFENAC EPOLAMINE
     Route: 048
     Dates: start: 20120210
  2. TAHOR [Concomitant]
     Active Substance: ATORVASTATIN CALCIUM
     Route: 048
     Dates: start: 20090515
  3. BIPROFENID [Concomitant]
     Active Substance: KETOPROFEN
     Route: 048
     Dates: start: 201004
  4. FLECTOR [Concomitant]
     Active Substance: DICLOFENAC EPOLAMINE
     Route: 048
     Dates: start: 20120207, end: 20120209
  5. ZOCOR [Concomitant]
     Active Substance: SIMVASTATIN
     Route: 048
     Dates: start: 20070709
  6. TERIFLUNOMIDE [Suspect]
     Active Substance: TERIFLUNOMIDE
     Indication: MULTIPLE SCLEROSIS
     Route: 048
     Dates: start: 20070709
  7. IXPRIM [Concomitant]
     Active Substance: ACETAMINOPHEN\TRAMADOL HYDROCHLORIDE
     Dosage: DOSE:1 UNIT(S)
     Route: 048
     Dates: start: 201004
  8. DIPROSONE [Concomitant]
     Active Substance: BETAMETHASONE DIPROPIONATE
     Route: 003
     Dates: start: 200807
  9. CHLORHEXIDINE [Concomitant]
     Active Substance: CHLORHEXIDINE
     Route: 003
     Dates: start: 20091023

REACTIONS (2)
  - Pregnancy of partner [Recovered/Resolved]
  - Abortion spontaneous [Recovered/Resolved]

NARRATIVE: CASE EVENT DATE: 20120113
